FAERS Safety Report 6028896-0 (Version None)
Quarter: 2008Q4

REPORT INFORMATION
  Report Type: 
  Country: None (occurrence: None)
  Receive Date: 20081230
  Receipt Date: 20081222
  Transmission Date: 20090506
  Serious: Yes (Death)
  Sender: FDA-Public Use
  Company Number: POMP-1000434

PATIENT
  Age: 10 Month
  Sex: Female

DRUGS (1)
  1. MYOZYME [Suspect]
     Indication: GLYCOGEN STORAGE DISEASE TYPE II
     Dosage: INTRAVENOUS
     Route: 042
     Dates: start: 20080501

REACTIONS (1)
  - DEATH [None]
